FAERS Safety Report 7480360-8 (Version None)
Quarter: 2011Q2

REPORT INFORMATION
  Report Type: 
  Country: None (occurrence: None)
  Receive Date: 20110512
  Receipt Date: 20110512
  Transmission Date: 20111010
  Serious: No
  Sender: FDA-Public Use
  Company Number: None

PATIENT
  Sex: Female
  Weight: 10.2 kg

DRUGS (4)
  1. VINCRISTINE SULFATE [Suspect]
     Dosage: .7 MG
     Dates: end: 20110425
  2. ONCASPAR [Suspect]
     Dosage: 1225 UNIT
     Dates: end: 20110328
  3. MERCAPTOPURINE [Suspect]
     Dosage: 75 MG
     Dates: end: 20110427
  4. METHOTREXATE [Suspect]
     Dosage: 2245 MG
     Dates: end: 20110425

REACTIONS (1)
  - BLOOD BILIRUBIN INCREASED [None]
